FAERS Safety Report 4296438-6 (Version None)
Quarter: 2004Q1

REPORT INFORMATION
  Report Type: 
  Country: None (occurrence: None)
  Receive Date: 20040212
  Receipt Date: 20040203
  Transmission Date: 20041129
  Serious: Yes (Hospitalization)
  Sender: FDA-Public Use
  Company Number: 2004197885FR

PATIENT
  Age: 56 Year
  Sex: Female

DRUGS (2)
  1. CELEBREX [Suspect]
     Dosage: ORAL
     Route: 048
     Dates: start: 20031127, end: 20031209
  2. XELODA [Suspect]
     Dosage: 1800 MG, BID, ORAL
     Route: 048
     Dates: start: 20031127, end: 20031209

REACTIONS (6)
  - COLITIS [None]
  - DIVERTICULUM [None]
  - DRUG TOXICITY [None]
  - ILEUS [None]
  - PALMAR-PLANTAR ERYTHRODYSAESTHESIA SYNDROME [None]
  - PERITONITIS [None]
